FAERS Safety Report 6283266-5 (Version None)
Quarter: 2009Q3

REPORT INFORMATION
  Report Type: 
  Country: None (occurrence: None)
  Receive Date: 20090722
  Receipt Date: 20090722
  Transmission Date: 20100115
  Serious: Yes (Hospitalization)
  Sender: FDA-Public Use
  Company Number: None

PATIENT
  Age: 59 Year
  Sex: Male

DRUGS (1)
  1. VALSARTAN [Suspect]
     Indication: CARDIAC FAILURE CHRONIC
     Dosage: 20 MG BID PO
     Route: 048
     Dates: start: 20090509, end: 20090515

REACTIONS (4)
  - BLOOD CREATININE INCREASED [None]
  - BLOOD UREA INCREASED [None]
  - CONFUSIONAL STATE [None]
  - MENTAL STATUS CHANGES [None]
